FAERS Safety Report 5353129-8 (Version None)
Quarter: 2007Q2

REPORT INFORMATION
  Report Type: 
  Country: None (occurrence: None)
  Receive Date: 20070611
  Receipt Date: 20070601
  Transmission Date: 20071010
  Serious: Yes (Other)
  Sender: FDA-Public Use
  Company Number: GB-PFIZER INC-2007046391

PATIENT
  Sex: Female

DRUGS (1)
  1. LIPITOR [Suspect]
     Route: 048

REACTIONS (1)
  - LENTIGO [None]
